FAERS Safety Report 14690755 (Version 1)
Quarter: 2018Q1

REPORT INFORMATION
  Report Type: Spontaneous
  Country: TR (occurrence: TR)
  Receive Date: 20180328
  Receipt Date: 20180328
  Transmission Date: 20180509
  Serious: Yes (Hospitalization, Other)
  Sender: FDA-Public Use
  Company Number: TR-ELI_LILLY_AND_COMPANY-TR201803008688

PATIENT
  Age: 60 Year
  Sex: Male

DRUGS (8)
  1. DIAMICRON [Concomitant]
     Active Substance: GLICLAZIDE
     Indication: PRODUCT USED FOR UNKNOWN INDICATION
  2. COLCHICIN [Concomitant]
     Active Substance: COLCHICINE
     Indication: GOUT
  3. CIALIS [Suspect]
     Active Substance: TADALAFIL
     Indication: ERECTILE DYSFUNCTION
     Dosage: 5 MG, UNKNOWN
     Route: 065
     Dates: start: 2015, end: 2016
  4. CIALIS [Suspect]
     Active Substance: TADALAFIL
     Dosage: UNK UNK, UNKNOWN
     Route: 065
     Dates: start: 20180312
  5. EKLIPS                             /01284801/ [Concomitant]
     Indication: DIABETES MELLITUS
  6. PIOGTAN [Concomitant]
     Indication: PRODUCT USED FOR UNKNOWN INDICATION
  7. GLIFOR [Concomitant]
     Active Substance: METFORMIN HYDROCHLORIDE
     Indication: DIABETES MELLITUS
  8. ECOPIRIN [Concomitant]
     Active Substance: ASPIRIN
     Indication: PRODUCT USED FOR UNKNOWN INDICATION

REACTIONS (7)
  - Cerebrovascular accident [Unknown]
  - Respiratory disorder [Unknown]
  - Cerebral haemorrhage [Unknown]
  - Blood glucose increased [Unknown]
  - Blood glucose increased [Unknown]
  - Coma [Unknown]
  - Drug ineffective [Unknown]

NARRATIVE: CASE EVENT DATE: 20180312
